FAERS Safety Report 16286546 (Version 3)
Quarter: 2019Q2

REPORT INFORMATION
  Report Type: Spontaneous
  Country: US (occurrence: US)
  Receive Date: 20190508
  Receipt Date: 20190529
  Transmission Date: 20190711
  Serious: Yes (Other)
  Sender: FDA-Public Use
  Company Number: US-PFIZER INC-2019193166

PATIENT
  Age: 74 Year
  Sex: Female
  Weight: 63 kg

DRUGS (4)
  1. LYRICA [Suspect]
     Active Substance: PREGABALIN
     Indication: BURNING SENSATION
     Dosage: 50 MG, 3X/DAY
     Route: 048
  2. VICODIN [Concomitant]
     Active Substance: ACETAMINOPHEN\HYDROCODONE BITARTRATE
     Indication: PAIN
     Dosage: UNK (EVERY FOUR TO FIVE HOURS)
     Route: 048
  3. LYRICA [Suspect]
     Active Substance: PREGABALIN
     Dosage: 75 MG, 3X/DAY (TAKE THREE A DAY OR MORE AS NEEDED UP TO FOUR TIMES A DAY)
  4. CELEBREX [Concomitant]
     Active Substance: CELECOXIB
     Indication: ARTHRALGIA
     Dosage: UNK

REACTIONS (9)
  - Product use issue [Unknown]
  - Suicidal ideation [Not Recovered/Not Resolved]
  - Intentional product use issue [Unknown]
  - Nervousness [Unknown]
  - Vision blurred [Unknown]
  - Contusion [Unknown]
  - Female sexual dysfunction [Unknown]
  - Off label use [Unknown]
  - Impaired driving ability [Unknown]
